FAERS Safety Report 6807408-5 (Version None)
Quarter: 2010Q2

REPORT INFORMATION
  Report Type: 
  Country: None (occurrence: None)
  Receive Date: 20100629
  Receipt Date: 20081027
  Transmission Date: 20101027
  Serious: No
  Sender: FDA-Public Use
  Company Number: US-PFIZER INC-2008067810

PATIENT
  Sex: Male
  Weight: 86.4 kg

DRUGS (6)
  1. VIAGRA [Suspect]
     Indication: ERECTILE DYSFUNCTION
     Dates: start: 20030101
  2. ATENOLOL [Concomitant]
  3. LOTREL [Concomitant]
  4. ACETYLSALICYLIC ACID [Concomitant]
  5. VITAMINS [Concomitant]
  6. LIPITOR [Concomitant]

REACTIONS (4)
  - BLOOD PRESSURE DECREASED [None]
  - BLOOD TESTOSTERONE DECREASED [None]
  - DRUG INEFFECTIVE [None]
  - PROSTATIC SPECIFIC ANTIGEN DECREASED [None]
